FAERS Safety Report 12999499 (Version 2)
Quarter: 2016Q4

REPORT INFORMATION
  Report Type: Spontaneous
  Country: FR (occurrence: FR)
  Receive Date: 20161205
  Receipt Date: 20161227
  Transmission Date: 20170207
  Serious: Yes (Other)
  Sender: FDA-Public Use
  Company Number: FR-PFIZER INC-2016555860

PATIENT
  Age: 85 Year
  Sex: Female

DRUGS (2)
  1. DEBRIDAT [Concomitant]
     Active Substance: TRIMEBUTINE MALEATE
     Dosage: 50 MG/5ML SINGLE
     Route: 042
     Dates: start: 20161115, end: 20161115
  2. ATRACURIUM BESILATE [Suspect]
     Active Substance: ATRACURIUM BESYLATE
     Indication: DRUG ADMINISTRATION ERROR
     Dosage: 50 MG SINGLE
     Route: 042
     Dates: start: 20161115, end: 20161115

REACTIONS (3)
  - Respiratory distress [Recovered/Resolved]
  - Altered state of consciousness [Recovered/Resolved]
  - Medication error [Recovered/Resolved]

NARRATIVE: CASE EVENT DATE: 20161115
